FAERS Safety Report 19165263 (Version 4)
Quarter: 2021Q4

REPORT INFORMATION
  Report Type: Other
  Country: JP (occurrence: JP)
  Receive Date: 20210421
  Receipt Date: 20211216
  Transmission Date: 20220303
  Serious: Yes (Hospitalization)
  Sender: FDA-Public Use
  Company Number: JP-CHUGAI-A2021015288ROCHE

PATIENT
  Age: 56 Year
  Sex: Female
  Weight: 124 kg

DRUGS (4)
  1. SATRALIZUMAB [Suspect]
     Active Substance: SATRALIZUMAB
     Indication: Neuromyelitis optica spectrum disorder
     Route: 058
     Dates: start: 20210118, end: 20210215
  2. SATRALIZUMAB [Suspect]
     Active Substance: SATRALIZUMAB
     Route: 058
     Dates: start: 20210315, end: 20210705
  3. AZATHIOPRINE [Concomitant]
     Active Substance: AZATHIOPRINE
  4. PREDONINE [Concomitant]
     Active Substance: PREDNISOLONE

REACTIONS (3)
  - Cellulitis [Recovered/Resolved]
  - Blood cholesterol increased [Recovered/Resolved]
  - Blood triglycerides increased [Recovered/Resolved]

NARRATIVE: CASE EVENT DATE: 20210315
